FAERS Safety Report 14552689 (Version 1)
Quarter: 2018Q1

REPORT INFORMATION
  Report Type: Spontaneous
  Country: US (occurrence: US)
  Receive Date: 20180216
  Receipt Date: 20180216
  Transmission Date: 20180509
  Serious: Yes (Disabling)
  Sender: FDA-Public Use
  Company Number: None

PATIENT
  Age: 30 Year

DRUGS (1)
  1. OLD SPICE GAME DAY HIGH ENDURANCE [Suspect]
     Active Substance: ALUMINUM ZIRCONIUM TRICHLOROHYDREX GLY
     Route: 061

REACTIONS (12)
  - Chemical burn [None]
  - Abscess [None]
  - Insomnia [None]
  - Loss of personal independence in daily activities [None]
  - Skin disorder [None]
  - Pain [None]
  - Swelling [None]
  - Mobility decreased [None]
  - Impaired work ability [None]
  - Pain in extremity [None]
  - Erythema [None]
  - Cyst [None]
